FAERS Safety Report 18279566 (Version 2)
Quarter: 2021Q4

REPORT INFORMATION
  Report Type: Spontaneous
  Country: US (occurrence: US)
  Receive Date: 20200917
  Receipt Date: 20211005
  Transmission Date: 20220303
  Serious: No
  Sender: FDA-Public Use
  Company Number: US-ADAMAS PHARMA, LLC-2020ADA02007

PATIENT
  Age: 72 Year
  Sex: Female
  Weight: 47.62 kg

DRUGS (17)
  1. GOCOVRI [Suspect]
     Active Substance: AMANTADINE
     Indication: Parkinson^s disease
     Dosage: 137 MG, 1X/DAY EVERY EVENING
     Route: 048
     Dates: start: 20200715, end: 2020
  2. GOCOVRI [Suspect]
     Active Substance: AMANTADINE
     Indication: Dyskinesia
     Dosage: 274 MG, 1X/DAY AT BEDTIME
     Route: 048
     Dates: start: 2020, end: 2020
  3. GOCOVRI [Suspect]
     Active Substance: AMANTADINE
     Dosage: 205.5 MG, 1X/DAY AT BEDTIME (137 MG + 68.5 MG)
     Route: 048
     Dates: start: 2020
  4. GOCOVRI [Suspect]
     Active Substance: AMANTADINE
     Indication: Parkinson^s disease
     Dosage: 205.5 MG, 1X/DAY AT BEDTIME (68.5 MG +137 MG)
     Route: 048
     Dates: start: 2020
  5. GOCOVRI [Suspect]
     Active Substance: AMANTADINE
     Indication: Dyskinesia
  6. CARBIDOPA\LEVODOPA [Concomitant]
     Active Substance: CARBIDOPA\LEVODOPA
  7. ALEVE [Concomitant]
     Active Substance: NAPROXEN SODIUM
     Dosage: UNK, AS NEEDED
  8. DICYCLOMINE [Concomitant]
     Active Substance: DICYCLOMINE HYDROCHLORIDE
  9. ESOMEPRAZOLE MAGNESIUM [Concomitant]
     Active Substance: ESOMEPRAZOLE MAGNESIUM
  10. NEUPRO [Concomitant]
     Active Substance: ROTIGOTINE
  11. VITAMINS [Concomitant]
     Active Substance: VITAMINS
  12. SERTRALINE [Concomitant]
     Active Substance: SERTRALINE HYDROCHLORIDE
  13. TAMOXIFEN [Concomitant]
     Active Substance: TAMOXIFEN
  14. TRAZODONE [Concomitant]
     Active Substance: TRAZODONE HYDROCHLORIDE
     Dosage: UNK, AS NEEDED
  15. VITAMIN C [Concomitant]
     Active Substance: ASCORBIC ACID
  16. PREDNISOLONE [Concomitant]
     Active Substance: PREDNISOLONE
  17. PREDNISONE [Concomitant]
     Active Substance: PREDNISONE

REACTIONS (3)
  - Dyskinesia [Not Recovered/Not Resolved]
  - Hallucination [Not Recovered/Not Resolved]
  - Product dose omission issue [Recovered/Resolved]

NARRATIVE: CASE EVENT DATE: 20200101
